FAERS Safety Report 20509091 (Version 2)
Quarter: 2022Q3

REPORT INFORMATION
  Report Type: Report from Study
  Country: US (occurrence: US)
  Receive Date: 20220223
  Receipt Date: 20220923
  Transmission Date: 20221027
  Serious: Yes (Hospitalization)
  Sender: FDA-Public Use
  Company Number: US-KYOWAKIRIN-2022BKK001900

PATIENT

DRUGS (4)
  1. CRYSVITA [Suspect]
     Active Substance: BUROSUMAB-TWZA
     Indication: Osteomalacia
     Dosage: 40 MG, EVERY 4 WEEKS
     Route: 058
     Dates: start: 20210224
  2. CRYSVITA [Suspect]
     Active Substance: BUROSUMAB-TWZA
     Indication: Mineral metabolism disorder
  3. CRYSVITA [Suspect]
     Active Substance: BUROSUMAB-TWZA
     Indication: Mineral metabolism disorder
     Dosage: 60 MG, 1X/4 WEEKS
     Route: 058
     Dates: start: 20210224
  4. CRYSVITA [Suspect]
     Active Substance: BUROSUMAB-TWZA
     Indication: Osteomalacia

REACTIONS (6)
  - Lipoma [Unknown]
  - Anxiety [Unknown]
  - Dyspnoea [Unknown]
  - Restlessness [Unknown]
  - Insomnia [Unknown]
  - Product use in unapproved indication [Not Recovered/Not Resolved]

NARRATIVE: CASE EVENT DATE: 20210224
